FAERS Safety Report 4612993-8 (Version None)
Quarter: 2005Q1

REPORT INFORMATION
  Report Type: 
  Country: None (occurrence: None)
  Receive Date: 20050318
  Receipt Date: 20040203
  Transmission Date: 20050727
  Serious: Yes (Death, Hospitalization, Disabling, Other)
  Sender: FDA-Public Use
  Company Number: US-ABBOTT-04P-163-0249822-00

PATIENT
  Sex: Male

DRUGS (8)
  1. KALETRA [Suspect]
     Indication: HIV INFECTION
     Dosage: LOPINAVIR 800 MG/RITONAVIR 200 MG
     Route: 048
     Dates: start: 20030808, end: 20040127
  2. STAVUDINE [Concomitant]
     Indication: ANTIVIRAL PROPHYLAXIS
  3. TENOFOVIR [Concomitant]
     Indication: ANTIVIRAL PROPHYLAXIS
  4. ZIDOVUDINE [Concomitant]
     Indication: ANTIVIRAL PROPHYLAXIS
  5. ENFUVIRTIDE [Concomitant]
     Indication: ANTIVIRAL PROPHYLAXIS
  6. ZITHROMAX [Concomitant]
     Indication: DRUG USE FOR UNKNOWN INDICATION
  7. BACTRIM [Concomitant]
     Indication: DRUG USE FOR UNKNOWN INDICATION
  8. ITRACONAZOLE [Concomitant]
     Indication: DRUG USE FOR UNKNOWN INDICATION

REACTIONS (16)
  - ANAEMIA [None]
  - BLOOD LACTATE DEHYDROGENASE INCREASED [None]
  - CYTOMEGALOVIRUS CHORIORETINITIS [None]
  - CYTOMEGALOVIRUS OESOPHAGITIS [None]
  - DIARRHOEA [None]
  - GASTRITIS [None]
  - HYPONATRAEMIA [None]
  - NAUSEA [None]
  - OESOPHAGEAL CANDIDIASIS [None]
  - PANCYTOPENIA [None]
  - PNEUMOCYSTIS JIROVECI PNEUMONIA [None]
  - PNEUMONIA CYTOMEGALOVIRAL [None]
  - PSEUDOMONAS INFECTION [None]
  - RECTAL HAEMORRHAGE [None]
  - RENAL FAILURE ACUTE [None]
  - SPLENOMEGALY [None]
